FAERS Safety Report 11087566 (Version 1)
Quarter: 2015Q2

REPORT INFORMATION
  Report Type: Spontaneous
  Country: IR (occurrence: IR)
  Receive Date: 20150504
  Receipt Date: 20150504
  Transmission Date: 20150821
  Serious: Yes (Hospitalization, Other)
  Sender: FDA-Public Use
  Company Number: IR-ACTAVIS-2015-08853

PATIENT
  Age: 20 Year
  Sex: Male

DRUGS (2)
  1. METHADONE [Suspect]
     Active Substance: METHADONE HYDROCHLORIDE
     Indication: PRODUCT USED FOR UNKNOWN INDICATION
     Dosage: 400 MG, UNKNOWN
     Route: 048
  2. TRAMADOL (UNKNOWN) [Suspect]
     Active Substance: TRAMADOL
     Indication: PRODUCT USED FOR UNKNOWN INDICATION
     Dosage: 2 G, UNKNOWN
     Route: 048

REACTIONS (4)
  - Overdose [Recovered/Resolved]
  - Loss of consciousness [Recovered/Resolved]
  - Joint dislocation [Unknown]
  - Generalised tonic-clonic seizure [Recovered/Resolved]
